FAERS Safety Report 4613469-4 (Version None)
Quarter: 2005Q1

REPORT INFORMATION
  Report Type: 
  Country: None (occurrence: None)
  Receive Date: 20050317
  Receipt Date: 20050317
  Transmission Date: 20050727
  Serious: Yes (Other)
  Sender: FDA-Public Use
  Company Number: None

PATIENT
  Sex: Male
  Weight: 82.7 kg

DRUGS (1)
  1. GEMZAR [Suspect]
     Dosage: 1000 MG/M2 DAYS 1,8,15 Q 28 DAYS
     Dates: start: 20040807, end: 20050301

REACTIONS (8)
  - ABDOMINAL DISCOMFORT [None]
  - COMA [None]
  - FEELING ABNORMAL [None]
  - GASTRIC OUTLET OBSTRUCTION [None]
  - HAEMATEMESIS [None]
  - PROCEDURAL COMPLICATION [None]
  - ULCER [None]
  - UPPER GASTROINTESTINAL HAEMORRHAGE [None]
